FAERS Safety Report 6922591-9 (Version None)
Quarter: 2010Q3

REPORT INFORMATION
  Report Type: 
  Country: None (occurrence: None)
  Receive Date: 20100813
  Receipt Date: 20100805
  Transmission Date: 20110219
  Serious: Yes (Hospitalization)
  Sender: FDA-Public Use
  Company Number: CN-JNJFOC-20100801672

PATIENT

DRUGS (3)
  1. SPORANOX [Suspect]
     Indication: FUNGAL INFECTION
     Route: 048
  2. CHEMOTHERAPY [Suspect]
     Indication: LEUKAEMIA
     Route: 065
  3. RADIOTHERAPY [Suspect]
     Indication: LEUKAEMIA
     Route: 065

REACTIONS (1)
  - AGEUSIA [None]
